FAERS Safety Report 4941081-6 (Version None)
Quarter: 2006Q1

REPORT INFORMATION
  Report Type: 
  Country: None (occurrence: None)
  Receive Date: 20060310
  Receipt Date: 20060310
  Transmission Date: 20060701
  Serious: Yes (Hospitalization)
  Sender: FDA-Public Use
  Company Number: None

PATIENT
  Age: 57 Year
  Sex: Male
  Weight: 87.5442 kg

DRUGS (1)
  1. BACTRIM DS [Suspect]
     Indication: OSTEOMYELITIS
     Dosage: 2 TABS  BID  PO
     Route: 048
     Dates: start: 20060214, end: 20060301

REACTIONS (1)
  - CLOSTRIDIUM COLITIS [None]
